FAERS Safety Report 4968529-5 (Version None)
Quarter: 2006Q2

REPORT INFORMATION
  Report Type: 
  Country: None (occurrence: None)
  Receive Date: 20060410
  Receipt Date: 20060329
  Transmission Date: 20061013
  Serious: Yes (Hospitalization, Other)
  Sender: FDA-Public Use
  Company Number: US-MERCK-0604USA00129

PATIENT
  Age: 68 Year
  Sex: Male
  Weight: 72 kg

DRUGS (5)
  1. VIOXX [Suspect]
     Indication: SPONDYLITIS
     Route: 048
     Dates: start: 20010529, end: 20040930
  2. LIPITOR [Concomitant]
     Route: 065
  3. ACETAMINOPHEN AND PROPOXYPHENE NAPSYLATE [Concomitant]
     Route: 065
  4. ZOLOFT [Concomitant]
     Route: 065
  5. CAPTOPRIL [Concomitant]
     Route: 065

REACTIONS (11)
  - BACK PAIN [None]
  - CEREBROVASCULAR ACCIDENT [None]
  - COLONIC POLYP [None]
  - DIVERTICULUM [None]
  - FALL [None]
  - LUMBAR SPINAL STENOSIS [None]
  - NECK INJURY [None]
  - ROAD TRAFFIC ACCIDENT [None]
  - SPONDYLOLISTHESIS [None]
  - URETHRAL STENOSIS [None]
  - WRIST FRACTURE [None]
